FAERS Safety Report 9772664 (Version 3)
Quarter: 2013Q4

REPORT INFORMATION
  Report Type: Spontaneous
  Country: FR (occurrence: FR)
  Receive Date: 20131219
  Receipt Date: 20131226
  Transmission Date: 20140711
  Serious: Yes (Death, Hospitalization)
  Sender: FDA-Public Use
  Company Number: FR-PFIZER INC-2013341551

PATIENT
  Age: 89 Year
  Sex: Female

DRUGS (11)
  1. TRIFLUCAN [Suspect]
     Indication: OESOPHAGEAL CANDIDIASIS
     Dosage: UNK
     Dates: start: 20130621, end: 20130711
  2. MERONEM [Suspect]
     Indication: URINARY TRACT INFECTION
     Dosage: 1 G, 3X/DAY
     Route: 041
     Dates: start: 20130701, end: 20130711
  3. AUGMENTIN [Suspect]
     Indication: URINARY TRACT INFECTION
     Dosage: UNK
     Route: 048
     Dates: start: 20130621, end: 20130701
  4. OFLOCET [Suspect]
     Indication: URINARY TRACT INFECTION
     Dosage: UNK
     Dates: start: 20130624, end: 20130701
  5. AMIKACIN [Suspect]
     Indication: URINARY TRACT INFECTION
     Dosage: 15 MG/KG, SINGLE
     Route: 041
     Dates: start: 20130701, end: 20130701
  6. ISOPTINE [Concomitant]
     Indication: HYPERTROPHIC CARDIOMYOPATHY
     Dosage: 40 MG, 2X/DAY (IN THE MORNING AND IN THE EVENING)
     Route: 048
  7. CACIT VITAMINE D3 [Concomitant]
     Dosage: 1 DF, DAILY
     Route: 048
  8. DEDROGYL [Concomitant]
     Dosage: 5 GTT, 1X/DAY (IN THE MORNING)
     Route: 048
  9. DOLIPRANE [Concomitant]
     Dosage: 1000 MG, AS NEEDED (2 CAPSULES)
     Route: 048
  10. INEXIUM [Concomitant]
     Dosage: 40 MG, 1X/DAY
     Route: 048
     Dates: start: 20130621
  11. ALDACTONE [Concomitant]
     Indication: ASCITES
     Dosage: UNK

REACTIONS (3)
  - Death [Fatal]
  - Hepatocellular injury [Recovering/Resolving]
  - Cholestasis [Recovering/Resolving]
